FAERS Safety Report 19034236 (Version 1)
Quarter: 2021Q1

REPORT INFORMATION
  Report Type: Spontaneous
  Country: JP (occurrence: JP)
  Receive Date: 20210320
  Receipt Date: 20210320
  Transmission Date: 20210420
  Serious: Yes (Hospitalization, Other)
  Sender: FDA-Public Use
  Company Number: JP-SUN PHARMACEUTICAL INDUSTRIES LTD-2021RR-286770

PATIENT
  Age: 60 Year
  Sex: Female

DRUGS (4)
  1. CARPERITIDE [Suspect]
     Active Substance: CARPERITIDE
     Indication: CARDIAC FAILURE
     Dosage: UNK
     Route: 042
  2. FUROSEMIDE. [Suspect]
     Active Substance: FUROSEMIDE
     Indication: CARDIAC FAILURE
     Dosage: UNK
     Route: 042
  3. DOBUTAMINE [Suspect]
     Active Substance: DOBUTAMINE HYDROCHLORIDE
     Indication: CARDIAC FAILURE
     Dosage: UNK
     Route: 042
  4. MILRINONE [Suspect]
     Active Substance: MILRINONE
     Indication: CARDIAC FAILURE
     Dosage: UNK
     Route: 065

REACTIONS (2)
  - Organ failure [Unknown]
  - Bacteraemia [Unknown]
